FAERS Safety Report 10555718 (Version 3)
Quarter: 2015Q1

REPORT INFORMATION
  Report Type: Report from Study
  Country: US (occurrence: US)
  Receive Date: 20141030
  Receipt Date: 20150115
  Transmission Date: 20150720
  Serious: Yes (Other)
  Sender: FDA-Public Use
  Company Number: PHEH2014US021144

PATIENT
  Age: 67 Year
  Sex: Female
  Weight: 68.27 kg

DRUGS (1)
  1. GILENYA [Suspect]
     Active Substance: FINGOLIMOD HYDROCHLORIDE
     Indication: MULTIPLE SCLEROSIS
     Dosage: 0.5 MG, QD
     Route: 048
     Dates: start: 20140618

REACTIONS (10)
  - Fall [Unknown]
  - Head injury [Unknown]
  - Visual impairment [Unknown]
  - Vision blurred [Recovering/Resolving]
  - Madarosis [Not Recovered/Not Resolved]
  - Eye disorder [Unknown]
  - Photophobia [Not Recovered/Not Resolved]
  - Macular degeneration [Unknown]
  - Balance disorder [Unknown]
  - Headache [Not Recovered/Not Resolved]

NARRATIVE: CASE EVENT DATE: 20141227
